FAERS Safety Report 5445217-2 (Version None)
Quarter: 2007Q3

REPORT INFORMATION
  Report Type: 
  Country: None (occurrence: None)
  Receive Date: 20070730
  Receipt Date: 20070510
  Transmission Date: 20080115
  Serious: Yes (Other)
  Sender: FDA-Public Use
  Company Number: 241090

PATIENT
  Age: 65 Year
  Sex: Female

DRUGS (9)
  1. RITUXAN [Suspect]
     Indication: RHEUMATOID ARTHRITIS
     Dosage: 500 MG, X4, INTRAVENOUS; 1000 MG, X2, INTRAVENOUS
     Route: 042
     Dates: start: 20050901
  2. RITUXAN [Suspect]
     Indication: RHEUMATOID ARTHRITIS
     Dosage: 500 MG, X4, INTRAVENOUS; 1000 MG, X2, INTRAVENOUS
     Route: 042
     Dates: start: 20060301
  3. VICODIN [Concomitant]
  4. TRAMADOL HCL [Concomitant]
  5. IBUPROFEN [Concomitant]
  6. NAPROXEN [Concomitant]
  7. ALBUTEROL (ALBUTEROL/ALBUTEROL SULFATE) [Concomitant]
  8. SINGULAIR [Concomitant]
  9. STEROID (UNK INGREDIENTS) (STEROID NOS) [Concomitant]

REACTIONS (2)
  - HIP ARTHROPLASTY [None]
  - STAPHYLOCOCCAL INFECTION [None]
